FAERS Safety Report 7540956-1 (Version None)
Quarter: 2011Q2

REPORT INFORMATION
  Report Type: 
  Country: None (occurrence: None)
  Receive Date: 20110610
  Receipt Date: 20110608
  Transmission Date: 20111010
  Serious: Yes (Other)
  Sender: FDA-Public Use
  Company Number: US-PFIZER INC-2011125323

PATIENT
  Sex: Male
  Weight: 71.2 kg

DRUGS (6)
  1. ATROPINE [Concomitant]
     Indication: PROPHYLAXIS OF NAUSEA AND VOMITING
     Dosage: 0.5 MG, UNK
     Route: 042
     Dates: start: 20110531, end: 20110531
  2. DEXAMETHASONE [Concomitant]
     Indication: PROPHYLAXIS OF NAUSEA AND VOMITING
     Dosage: 10 MG, UNK
     Route: 042
     Dates: start: 20110531, end: 20110531
  3. ALOXI [Concomitant]
     Indication: PROPHYLAXIS OF NAUSEA AND VOMITING
     Dosage: 0.25 MG, UNK
     Route: 042
     Dates: start: 20110531, end: 20110531
  4. CAMPTOSAR [Suspect]
     Indication: COLORECTAL CANCER
     Dosage: 63 MG, UNK
     Route: 042
     Dates: start: 20110531, end: 20110531
  5. AVASTIN [Concomitant]
     Indication: COLORECTAL CANCER
     Dosage: 375 MG, OVER THIRTY MINUTES
     Route: 042
     Dates: start: 20110531, end: 20110531
  6. EMEND [Concomitant]
     Indication: PROPHYLAXIS OF NAUSEA AND VOMITING
     Dosage: 150 MG, UNK
     Route: 042
     Dates: start: 20110531, end: 20110531

REACTIONS (6)
  - THROAT IRRITATION [None]
  - LOCAL SWELLING [None]
  - FLUSHING [None]
  - SWELLING FACE [None]
  - RASH [None]
  - THROAT TIGHTNESS [None]
